FAERS Safety Report 7662051-3 (Version None)
Quarter: 2011Q3

REPORT INFORMATION
  Report Type: 
  Country: None (occurrence: None)
  Receive Date: 20110805
  Receipt Date: 20101209
  Transmission Date: 20111222
  Serious: No
  Sender: FDA-Public Use
  Company Number: US-ABBOTT-10P-163-0690406-00

PATIENT
  Sex: Female
  Weight: 72.186 kg

DRUGS (8)
  1. NIASPAN [Suspect]
     Route: 048
     Dates: start: 20101202
  2. PLAVIX [Concomitant]
     Indication: MYOCARDIAL INFARCTION
  3. LEVOTHYROXINE SODIUM [Concomitant]
     Indication: HYPOTHYROIDISM
  4. METAMUCIL-2 [Concomitant]
     Indication: DIVERTICULITIS
  5. NIASPAN [Suspect]
     Indication: MYOCARDIAL INFARCTION
     Route: 048
     Dates: start: 20091201, end: 20100101
  6. WELLBUTRIN [Concomitant]
     Indication: DEPRESSION
  7. METOPROLOL TARTRATE [Concomitant]
     Indication: MYOCARDIAL INFARCTION
     Route: 048
  8. LIPITOR [Concomitant]
     Indication: MYOCARDIAL INFARCTION
     Dosage: HALF TAB DAILY
     Route: 048

REACTIONS (1)
  - FEELING HOT [None]
